FAERS Safety Report 10356291 (Version 1)
Quarter: 2014Q3

REPORT INFORMATION
  Report Type: Report from Study
  Country: US (occurrence: US)
  Receive Date: 20140801
  Receipt Date: 20140801
  Transmission Date: 20150326
  Serious: Yes (Other)
  Sender: FDA-Public Use
  Company Number: US-ROCHE-1440005

PATIENT

DRUGS (4)
  1. CAPECITABINE [Suspect]
     Active Substance: CAPECITABINE
     Indication: GASTROINTESTINAL NEOPLASM
  2. SORAFENIB [Suspect]
     Active Substance: SORAFENIB
     Indication: BREAST CANCER
     Dosage: GIVEN ON A CONTINUOUS BASIS
     Route: 065
  3. CAPECITABINE [Suspect]
     Active Substance: CAPECITABINE
     Indication: BREAST CANCER
     Dosage: FLAT DOSING ON DAYS 1-7 AND 15-21 OF A 28 DAY CYCLE
     Route: 065
  4. SORAFENIB [Suspect]
     Active Substance: SORAFENIB
     Indication: GASTROINTESTINAL NEOPLASM
     Dosage: GIVEN ON A CONTINUOUS BASIS
     Route: 065

REACTIONS (15)
  - Palmar-plantar erythrodysaesthesia syndrome [Unknown]
  - Pain in extremity [Unknown]
  - Decreased appetite [Unknown]
  - Anaemia [Unknown]
  - Hypertension [Unknown]
  - Hyponatraemia [Unknown]
  - Diarrhoea [Unknown]
  - Nausea [Unknown]
  - Rash maculo-papular [Unknown]
  - Vomiting [Unknown]
  - Hypophosphataemia [Unknown]
  - Amylase increased [Unknown]
  - Lipase increased [Unknown]
  - Fatigue [Unknown]
  - Blood alkaline phosphatase increased [Unknown]
